FAERS Safety Report 17865583 (Version 1)
Quarter: 2020Q2

REPORT INFORMATION
  Report Type: Spontaneous
  Country: FR (occurrence: FR)
  Receive Date: 20200605
  Receipt Date: 20200605
  Transmission Date: 20200714
  Serious: Yes (Other)
  Sender: FDA-Public Use
  Company Number: FR-PFIZER INC-2020219195

PATIENT
  Age: 64 Year
  Sex: Male

DRUGS (2)
  1. EFFEXOR [Suspect]
     Active Substance: VENLAFAXINE HYDROCHLORIDE
     Indication: SUICIDE ATTEMPT
     Dosage: 10 CP (10 DF, SINGLE)
     Route: 048
     Dates: start: 20171227, end: 20171227
  2. IMOVANE [Suspect]
     Active Substance: ZOPICLONE
     Indication: SUICIDE ATTEMPT
     Dosage: 25 CP (25 DF, SINGLE)
     Route: 048
     Dates: start: 20171227, end: 20171227

REACTIONS (4)
  - Psychomotor retardation [Recovered/Resolved]
  - Hypothermia [Recovered/Resolved]
  - Suicide attempt [Recovered/Resolved]
  - Toxicity to various agents [Recovered/Resolved]

NARRATIVE: CASE EVENT DATE: 20171227
